FAERS Safety Report 16847690 (Version 1)
Quarter: 2019Q3

REPORT INFORMATION
  Report Type: Other
  Country: US (occurrence: US)
  Receive Date: 20190924
  Receipt Date: 20190924
  Transmission Date: 20191005
  Serious: No
  Sender: FDA-Public Use
  Company Number: US-ACORDA-ACO_160655_2019

PATIENT
  Age: 59 Year
  Sex: Female

DRUGS (3)
  1. INBRIJA [Suspect]
     Active Substance: LEVODOPA
     Indication: ON AND OFF PHENOMENON
  2. CARBIDOPA/ LEVODOPA [Concomitant]
     Active Substance: CARBIDOPA\LEVODOPA
     Indication: PRODUCT USED FOR UNKNOWN INDICATION
     Dosage: UNK
     Route: 048
  3. INBRIJA [Suspect]
     Active Substance: LEVODOPA
     Indication: PARKINSON^S DISEASE
     Dosage: 42 MILLIGRAM, PRN, (2 PUFFS FROM ONE 42MG CAPSULE) THREE TIMES A DAY AS NEEDED
     Dates: start: 20190803

REACTIONS (6)
  - Device use issue [Unknown]
  - Incorrect dose administered [Unknown]
  - Therapeutic product effect decreased [Unknown]
  - Choking [Unknown]
  - Pollakiuria [Unknown]
  - Cough [Unknown]

NARRATIVE: CASE EVENT DATE: 20190831
